FAERS Safety Report 5079790-3 (Version None)
Quarter: 2006Q3

REPORT INFORMATION
  Report Type: 
  Country: None (occurrence: None)
  Receive Date: 20060808
  Receipt Date: 20060802
  Transmission Date: 20061208
  Serious: Yes (Hospitalization)
  Sender: FDA-Public Use
  Company Number: TPA2006A01092

PATIENT
  Age: 56 Year
  Sex: Male
  Weight: 103.8737 kg

DRUGS (3)
  1. ACTOS [Suspect]
     Indication: DIABETES MELLITUS
     Dosage: 15 MG, 1 IN 1 D, PER ORAL
     Route: 048
     Dates: start: 20060113
  2. GLYBURIDE /METFORMIN (METFORMIN, GLIBENCLAMIDE) [Concomitant]
  3. NOVOLIN 70/30 [Concomitant]

REACTIONS (4)
  - ANGINA PECTORIS [None]
  - ATRIOVENTRICULAR BLOCK [None]
  - CORONARY ARTERY OCCLUSION [None]
  - LOSS OF CONSCIOUSNESS [None]
